FAERS Safety Report 6779269-4 (Version None)
Quarter: 2010Q2

REPORT INFORMATION
  Report Type: 
  Country: None (occurrence: None)
  Receive Date: 20100618
  Receipt Date: 20100614
  Transmission Date: 20101027
  Serious: Yes (Other)
  Sender: FDA-Public Use
  Company Number: DE-ROCHE-709476

PATIENT
  Sex: Female

DRUGS (2)
  1. AVASTIN [Suspect]
     Route: 065
     Dates: start: 20100512
  2. TAXOTERE [Suspect]
     Route: 065
     Dates: start: 20100512

REACTIONS (2)
  - ALOPECIA [None]
  - FOLLICULITIS [None]
